FAERS Safety Report 6707873-8 (Version None)
Quarter: 2010Q2

REPORT INFORMATION
  Report Type: 
  Country: None (occurrence: None)
  Receive Date: 20100503
  Receipt Date: 20090706
  Transmission Date: 20101027
  Serious: No
  Sender: FDA-Public Use
  Company Number: US-ASTRAZENECA-2009UW18736

PATIENT
  Age: 60 Year
  Sex: Female
  Weight: 106.6 kg

DRUGS (4)
  1. NEXIUM [Suspect]
     Route: 048
     Dates: start: 19990101
  2. BENADRYL [Concomitant]
  3. CLONAZEPAM [Concomitant]
  4. SYNTHROID [Concomitant]

REACTIONS (1)
  - OROPHARYNGEAL PAIN [None]
